FAERS Safety Report 18484129 (Version 2)
Quarter: 2020Q4

REPORT INFORMATION
  Report Type: Spontaneous
  Country: US (occurrence: US)
  Receive Date: 20201110
  Receipt Date: 20201123
  Transmission Date: 20210114
  Serious: No
  Sender: FDA-Public Use
  Company Number: US-GLENMARK PHARMACEUTICALS-2020GMK049523

PATIENT

DRUGS (2)
  1. FLUOCINOLONE ACETONIDE 0.01% TOPICAL OIL (SCALP OIL) [Suspect]
     Active Substance: FLUOCINOLONE ACETONIDE
     Indication: SKIN DISORDER
  2. FLUOCINOLONE ACETONIDE 0.01% TOPICAL OIL (SCALP OIL) [Suspect]
     Active Substance: FLUOCINOLONE ACETONIDE
     Indication: ALOPECIA
     Dosage: UNK, THREE TIMES A WEEK
     Route: 061
     Dates: start: 2020

REACTIONS (8)
  - Sleep disorder [Unknown]
  - Feeling abnormal [Unknown]
  - Product use complaint [Unknown]
  - Application site pain [Unknown]
  - Product use in unapproved indication [Unknown]
  - Product quality issue [Unknown]
  - Hair texture abnormal [Unknown]
  - Application site pruritus [Unknown]

NARRATIVE: CASE EVENT DATE: 2020
